FAERS Safety Report 20026959 (Version 1)
Quarter: 2021Q4

REPORT INFORMATION
  Report Type: Other
  Country: SE (occurrence: SE)
  Receive Date: 20211103
  Receipt Date: 20211103
  Transmission Date: 20220303
  Serious: Yes (Life-Threatening, Hospitalization, Other)
  Sender: FDA-Public Use
  Company Number: SE-DEXPHARM-20211783

PATIENT
  Age: 48 Year
  Sex: Male

DRUGS (3)
  1. VENLAFAXINE [Interacting]
     Active Substance: VENLAFAXINE HYDROCHLORIDE
     Dosage: APPROXIMATELY 20 G VENLAFAXINE
  2. ZOLPIDEM [Interacting]
     Active Substance: ZOLPIDEM TARTRATE
     Dosage: 450 MG ZOLPIDEM
  3. PROPIOMAZINE [Interacting]
     Active Substance: PROPIOMAZINE
     Dosage: 250 MG PROPIOMAZINE

REACTIONS (8)
  - Poisoning [Recovered/Resolved]
  - Generalised tonic-clonic seizure [Recovered/Resolved]
  - Stress cardiomyopathy [Recovered/Resolved]
  - Metabolic acidosis [Recovered/Resolved]
  - Anuria [Recovered/Resolved]
  - Arterial haemorrhage [Recovered/Resolved]
  - Drug interaction [Recovered/Resolved]
  - Cardiac arrest [Recovered/Resolved]
